FAERS Safety Report 6244288-3 (Version None)
Quarter: 2009Q2

REPORT INFORMATION
  Report Type: 
  Country: None (occurrence: None)
  Receive Date: 20090623
  Receipt Date: 20090609
  Transmission Date: 20091009
  Serious: Yes (Death)
  Sender: FDA-Public Use
  Company Number: 2009EN000193

PATIENT
  Age: 8 Month
  Sex: Female

DRUGS (1)
  1. ADAGEN [Suspect]
     Indication: DRUG USE FOR UNKNOWN INDICATION
     Dosage: ; IM, 20 IU/KG; BIW; IM
     Route: 030
     Dates: end: 20090519

REACTIONS (2)
  - LYMPHOCYTE COUNT DECREASED [None]
  - T-LYMPHOCYTE COUNT DECREASED [None]
